FAERS Safety Report 22092362 (Version 5)
Quarter: 2023Q2

REPORT INFORMATION
  Report Type: Report from Study
  Country: CN (occurrence: CN)
  Receive Date: 20230314
  Receipt Date: 20230426
  Transmission Date: 20230721
  Serious: Yes (Death, Life-Threatening)
  Sender: FDA-Public Use
  Company Number: CN-BEIGENE-BGN-2023-001797

PATIENT
  Age: 75 Year
  Sex: Male
  Weight: 55 kg

DRUGS (16)
  1. OCIPERLIMAB [Suspect]
     Active Substance: OCIPERLIMAB
     Indication: Non-small cell lung cancer metastatic
     Dosage: 900 MG, Q3W
     Route: 042
     Dates: start: 20221027
  2. OCIPERLIMAB [Suspect]
     Active Substance: OCIPERLIMAB
     Dosage: 900 MG, Q3W
     Route: 042
     Dates: start: 20230118
  3. TISLELIZUMAB [Suspect]
     Active Substance: TISLELIZUMAB
     Indication: Non-small cell lung cancer metastatic
     Dosage: 200 MG, Q3W
     Route: 042
     Dates: start: 20221027
  4. TISLELIZUMAB [Suspect]
     Active Substance: TISLELIZUMAB
     Dosage: 200 MG, Q3W
     Route: 042
     Dates: start: 20230118
  5. PACLITAXEL [Suspect]
     Active Substance: PACLITAXEL
     Indication: Non-small cell lung cancer metastatic
     Dosage: 278 MG
     Route: 042
     Dates: start: 20221027
  6. PACLITAXEL [Suspect]
     Active Substance: PACLITAXEL
     Dosage: 278 MG
     Route: 042
     Dates: start: 20221208
  7. LEVAMLODIPINE BESYLATE [Concomitant]
     Active Substance: LEVAMLODIPINE BESYLATE
     Indication: Hypertension
     Dosage: UNK
     Route: 065
     Dates: start: 2015
  8. ASPIRIN [Concomitant]
     Active Substance: ASPIRIN
     Indication: Thrombosis
     Dosage: UNK
     Route: 065
     Dates: start: 2020
  9. ATORVASTATIN [Concomitant]
     Active Substance: ATORVASTATIN
     Indication: Dyslipidaemia
     Dosage: UNK
     Route: 065
     Dates: start: 2020
  10. COMPOUND RUTIN [Concomitant]
     Indication: Prophylaxis
     Dosage: UNK
     Route: 065
     Dates: start: 2020
  11. AZASETRON HYDROCHLORIDE [Concomitant]
     Active Substance: AZASETRON HYDROCHLORIDE
     Indication: Prophylaxis
     Dosage: UNK
     Route: 065
     Dates: start: 20221208
  12. CIMETIDINE [Concomitant]
     Active Substance: CIMETIDINE
     Indication: Prophylaxis
     Dosage: UNK
     Route: 065
     Dates: start: 20221208, end: 20221208
  13. DEXAMETHASONE SODIUM PHOSPHATE [Concomitant]
     Active Substance: DEXAMETHASONE SODIUM PHOSPHATE
     Indication: Allergy prophylaxis
     Dosage: UNK
     Route: 065
     Dates: start: 20221208, end: 20221208
  14. DEXAMETHASONE [Concomitant]
     Active Substance: DEXAMETHASONE
     Indication: Allergy prophylaxis
     Dosage: UNK
     Route: 065
     Dates: start: 20221208, end: 20221208
  15. OMEPRAZOLE [Concomitant]
     Active Substance: OMEPRAZOLE
     Indication: Prophylaxis
     Dosage: UNK
     Route: 065
     Dates: start: 20221208, end: 20221208
  16. PROMETHAZINE HYDROCHLORIDE [Concomitant]
     Active Substance: PROMETHAZINE HYDROCHLORIDE
     Indication: Prophylaxis
     Dosage: UNK
     Route: 065
     Dates: start: 20221208, end: 20221208

REACTIONS (1)
  - Death [Fatal]

NARRATIVE: CASE EVENT DATE: 20230308
